FAERS Safety Report 25652259 (Version 1)
Quarter: 2025Q3

REPORT INFORMATION
  Report Type: Spontaneous
  Country: US (occurrence: US)
  Receive Date: 20250807
  Receipt Date: 20250807
  Transmission Date: 20251021
  Serious: No
  Sender: ROCHE
  Company Number: US-ROCHE-10000356214

PATIENT
  Sex: Female

DRUGS (1)
  1. OCREVUS ZUNOVO [Suspect]
     Active Substance: HYALURONIDASE-OCSQ\OCRELIZUMAB
     Indication: Multiple sclerosis
     Route: 065
     Dates: start: 20250731

REACTIONS (4)
  - Injection site swelling [Recovered/Resolved]
  - Abdominal pain lower [Unknown]
  - Contusion [Unknown]
  - Injection site erythema [Recovered/Resolved]
